FAERS Safety Report 4341046-1 (Version None)
Quarter: 2004Q2

REPORT INFORMATION
  Report Type: 
  Country: None (occurrence: None)
  Receive Date: 20040419
  Receipt Date: 20040408
  Transmission Date: 20050107
  Serious: Yes (Disabling)
  Sender: FDA-Public Use
  Company Number: GB-MERCK-0404GBR00071

PATIENT
  Age: 50 Year
  Sex: Male
  Weight: 83 kg

DRUGS (8)
  1. ACETAMINOPHEN AND DIHYDROCODEINE BITARTRATE [Concomitant]
     Route: 065
  2. ATORVASTATIN CALCIUM [Suspect]
     Indication: HYPERCHOLESTEROLAEMIA
     Route: 048
  3. BETAHISTINE HYDROCHLORIDE [Concomitant]
     Route: 065
  4. BUTYLSCOPOLAMINE BROMIDE [Concomitant]
     Route: 065
  5. ESOMEPRAZOLE MAGNESIUM [Concomitant]
     Route: 065
  6. MOMETASONE FUROATE [Concomitant]
     Route: 061
  7. ZOCOR [Suspect]
     Indication: HYPERCHOLESTEROLAEMIA
     Route: 048
  8. SOTALOL HYDROCHLORIDE [Concomitant]
     Route: 065

REACTIONS (2)
  - PROCTALGIA [None]
  - PROCTALGIA FUGAX [None]
